FAERS Safety Report 9153353 (Version 1)
Quarter: 2013Q1

REPORT INFORMATION
  Report Type: Report from Study
  Country: ES (occurrence: ES)
  Receive Date: 20130311
  Receipt Date: 20130311
  Transmission Date: 20140127
  Serious: Yes (Other)
  Sender: FDA-Public Use
  Company Number: ES-VERTEX PHARMACEUTICALS INC.-2013-003274

PATIENT
  Sex: Male

DRUGS (3)
  1. INCIVO [Suspect]
     Indication: HEPATITIS C
     Route: 048
     Dates: start: 20120119
  2. RIBAVIRIN [Suspect]
     Indication: HEPATITIS C
     Dates: start: 20120119
  3. INTERFERON ALFA [Suspect]
     Indication: HEPATITIS C
     Dates: start: 20120119

REACTIONS (3)
  - Leukopenia [Unknown]
  - Neutropenia [Unknown]
  - Anaemia [Unknown]
